FAERS Safety Report 6162041-6 (Version None)
Quarter: 2009Q2

REPORT INFORMATION
  Report Type: 
  Country: None (occurrence: None)
  Receive Date: 20090417
  Receipt Date: 20090407
  Transmission Date: 20091009
  Serious: Yes (Disabling)
  Sender: FDA-Public Use
  Company Number: GXKR2009GB04441

PATIENT
  Age: 40 Year
  Sex: Female

DRUGS (3)
  1. DOXYCYCLINE [Suspect]
     Indication: FOREIGN BODY TRAUMA
     Dosage: 100 MG, ORAL
     Route: 048
     Dates: start: 20090315, end: 20090319
  2. TRANEXAMIC ACID (NGX) (TRANEXAMIC ACID) [Suspect]
     Indication: VAGINAL DISCHARGE
     Dosage: 500 MG, ORAL
     Route: 048
     Dates: start: 20090315, end: 20090319
  3. ANTIBIOTICS (NO INGREDIENTS/SUBSTANCES) [Concomitant]

REACTIONS (3)
  - HYPOAESTHESIA [None]
  - SWELLING FACE [None]
  - VISUAL IMPAIRMENT [None]
